FAERS Safety Report 22653504 (Version 1)
Quarter: 2023Q2

REPORT INFORMATION
  Report Type: Spontaneous
  Country: US (occurrence: None)
  Receive Date: 20230627
  Receipt Date: 20230627
  Transmission Date: 20230722
  Serious: Yes (Hospitalization)
  Sender: FDA-Public Use
  Company Number: None

PATIENT
  Age: 62 Year
  Sex: Female

DRUGS (3)
  1. XGEVA [Suspect]
     Active Substance: DENOSUMAB
     Indication: Rectal cancer
     Dosage: 1.7ML EVERY 4 WEEKS SUBCUTANEOUSLY
     Route: 058
     Dates: start: 202305
  2. XGEVA [Suspect]
     Active Substance: DENOSUMAB
     Indication: Bone cancer
  3. XGEVA [Suspect]
     Active Substance: DENOSUMAB
     Indication: Osteoporosis

REACTIONS (4)
  - Dehydration [None]
  - Blood calcium decreased [None]
  - Blood potassium decreased [None]
  - Protein total decreased [None]

NARRATIVE: CASE EVENT DATE: 20230623
